FAERS Safety Report 7427861-6 (Version None)
Quarter: 2011Q2

REPORT INFORMATION
  Report Type: 
  Country: None (occurrence: None)
  Receive Date: 20110412
  Receipt Date: 20110328
  Transmission Date: 20111010
  Serious: No
  Sender: FDA-Public Use
  Company Number: AUR-APL-2011-01134

PATIENT
  Age: 45 Year
  Sex: Male

DRUGS (6)
  1. DIDANOSINE [Suspect]
     Indication: ANTIRETROVIRAL THERAPY
     Dates: start: 19980101
  2. LAMIVUDINE [Suspect]
     Indication: ANTIRETROVIRAL THERAPY
     Dates: start: 19940101
  3. AZT [Suspect]
     Indication: ANTIRETROVIRAL THERAPY
     Dates: start: 19940101
  4. D4T [Suspect]
     Indication: ANTIRETROVIRAL THERAPY
     Dates: start: 19980101
  5. SAQUINAVIR [Suspect]
     Indication: ANTIRETROVIRAL THERAPY
     Dates: start: 19980101, end: 19990101
  6. NELFINAVIR [Suspect]
     Indication: ANTIRETROVIRAL THERAPY
     Dates: start: 19990101

REACTIONS (6)
  - CHOLESTASIS [None]
  - PORTAL HYPERTENSION [None]
  - HEPATIC STEATOSIS [None]
  - THROMBOCYTOPENIA [None]
  - ANAEMIA [None]
  - HEPATOTOXICITY [None]
